FAERS Safety Report 4623072-8 (Version None)
Quarter: 2005Q1

REPORT INFORMATION
  Report Type: 
  Country: None (occurrence: None)
  Receive Date: 20050107
  Receipt Date: 20041010
  Transmission Date: 20050727
  Serious: No
  Sender: FDA-Public Use
  Company Number: 235118K04USA

PATIENT
  Age: 42 Year
  Sex: Female

DRUGS (8)
  1. REBIF [Suspect]
     Indication: MULTIPLE SCLEROSIS
     Dosage: 44 MCG
     Dates: start: 20040901
  2. VICODIN [Concomitant]
  3. FLEXERIL [Concomitant]
  4. BEXTRA [Concomitant]
  5. LEXAPRO [Concomitant]
  6. TEMAZEPAM [Concomitant]
  7. BACLOFEN [Concomitant]
  8. DETROL [Concomitant]

REACTIONS (14)
  - ACUTE LYMPHOCYTIC LEUKAEMIA [None]
  - ANGIOPATHY [None]
  - FATIGUE [None]
  - FOOT FRACTURE [None]
  - FRACTURE [None]
  - INJECTION SITE ERYTHEMA [None]
  - INJECTION SITE IRRITATION [None]
  - INJECTION SITE PAIN [None]
  - INJECTION SITE REACTION [None]
  - OEDEMA [None]
  - OEDEMA PERIPHERAL [None]
  - PATHOLOGICAL FRACTURE [None]
  - SKIN DISCOLOURATION [None]
  - SWELLING [None]
